FAERS Safety Report 7512998-3 (Version None)
Quarter: 2011Q2

REPORT INFORMATION
  Report Type: 
  Country: None (occurrence: None)
  Receive Date: 20110531
  Receipt Date: 20100517
  Transmission Date: 20111010
  Serious: Yes (Other)
  Sender: FDA-Public Use
  Company Number: US-NOVEN-SPV1-2010-00972

PATIENT

DRUGS (2)
  1. NASONEX [Concomitant]
     Route: 061
     Dates: start: 20100101
  2. DAYTRANA [Suspect]
     Indication: ATTENTION DEFICIT/HYPERACTIVITY DISORDER
     Dosage: 30 MG, 1X/DAY:QD
     Route: 062
     Dates: start: 20100101

REACTIONS (2)
  - GRAND MAL CONVULSION [None]
  - WRONG TECHNIQUE IN DRUG USAGE PROCESS [None]
